FAERS Safety Report 4384950-0 (Version None)
Quarter: 2004Q2

REPORT INFORMATION
  Report Type: 
  Country: None (occurrence: None)
  Receive Date: 20040625
  Receipt Date: 20040623
  Transmission Date: 20050107
  Serious: Yes (Other)
  Sender: FDA-Public Use
  Company Number: ES-ROCHE-371843

PATIENT
  Age: 77 Year
  Sex: Female

DRUGS (1)
  1. ISODIUR [Suspect]
     Indication: DRUG USE FOR UNKNOWN INDICATION
     Dosage: DURATION REPORTED AS 495-525 DAYS.
     Route: 048

REACTIONS (3)
  - HYPOVOLAEMIA [None]
  - RENAL IMPAIRMENT [None]
  - RHABDOMYOLYSIS [None]
